FAERS Safety Report 16208590 (Version 1)
Quarter: 2019Q2

REPORT INFORMATION
  Report Type: Spontaneous
  Country: JP (occurrence: JP)
  Receive Date: 20190417
  Receipt Date: 20190417
  Transmission Date: 20190711
  Serious: Yes (Other)
  Sender: FDA-Public Use
  Company Number: JP-PFIZER INC-2019154294

PATIENT
  Sex: Female

DRUGS (1)
  1. CELECOX [Suspect]
     Active Substance: CELECOXIB
     Indication: FRACTURE PAIN
     Dosage: UNK

REACTIONS (2)
  - Thrombosis [Recovered/Resolved]
  - Aneurysm [Recovered/Resolved]
